FAERS Safety Report 14588713 (Version 1)
Quarter: 2018Q1

REPORT INFORMATION
  Report Type: Spontaneous
  Country: US (occurrence: US)
  Receive Date: 20180301
  Receipt Date: 20180301
  Transmission Date: 20180509
  Serious: No
  Sender: FDA-Public Use
  Company Number: US-TAIHO ONCOLOGY INC-EU-2018-00326

PATIENT
  Sex: Male

DRUGS (12)
  1. IRON [Concomitant]
     Active Substance: IRON
     Dosage: NI
  2. ATORVASTATIN CALCIUM. [Concomitant]
     Active Substance: ATORVASTATIN CALCIUM
     Dosage: NI
  3. ONDANSETRON [Concomitant]
     Active Substance: ONDANSETRON
     Dosage: NI
  4. AMLODIPINE [Concomitant]
     Active Substance: AMLODIPINE BESYLATE
     Dosage: NI
  5. COMPAZINE [Concomitant]
     Active Substance: PROCHLORPERAZINE MALEATE
     Dosage: NI
  6. GEMCITABINE HYDROCHLORIDE. [Concomitant]
     Active Substance: GEMCITABINE HYDROCHLORIDE
     Dosage: NI
  7. NOVOLOG [Concomitant]
     Active Substance: INSULIN ASPART
     Dosage: NI
  8. LONSURF [Suspect]
     Active Substance: TIPIRACIL HYDROCHLORIDE\TRIFLURIDINE
     Indication: COLON CANCER
     Route: 048
     Dates: start: 20170108, end: 201708
  9. LANTUS [Concomitant]
     Active Substance: INSULIN GLARGINE
     Dosage: NI
  10. ZOFRAN [Concomitant]
     Active Substance: ONDANSETRON HYDROCHLORIDE
     Dosage: NI
  11. PRESERVISION AREDS [Concomitant]
     Active Substance: MINERALS\VITAMINS
     Dosage: NI
  12. METFORMIN [Concomitant]
     Active Substance: METFORMIN HYDROCHLORIDE
     Dosage: NI

REACTIONS (2)
  - Radiotherapy to liver [Unknown]
  - Liver disorder [Unknown]

NARRATIVE: CASE EVENT DATE: 2017
